FAERS Safety Report 7550087-2 (Version None)
Quarter: 2011Q2

REPORT INFORMATION
  Report Type: 
  Country: None (occurrence: None)
  Receive Date: 20110615
  Receipt Date: 20110606
  Transmission Date: 20111010
  Serious: Yes (Hospitalization)
  Sender: FDA-Public Use
  Company Number: US-ELI_LILLY_AND_COMPANY-US201106001644

PATIENT
  Age: 38 Year
  Sex: Female
  Weight: 43.084 kg

DRUGS (4)
  1. ADCIRCA [Suspect]
     Indication: CARDIAC FAILURE CONGESTIVE
     Dosage: 1 DF, UNK
  2. DIURETICS [Concomitant]
  3. REMODULIN [Concomitant]
     Indication: PULMONARY HYPERTENSION
     Dosage: 14 NG, UNK
     Dates: start: 20110526
  4. COUMADIN [Concomitant]

REACTIONS (1)
  - OEDEMA [None]
